FAERS Safety Report 4843651-2 (Version None)
Quarter: 2005Q4

REPORT INFORMATION
  Report Type: 
  Country: None (occurrence: None)
  Receive Date: 20051129
  Receipt Date: 20051116
  Transmission Date: 20060501
  Serious: Yes (Other)
  Sender: FDA-Public Use
  Company Number: 215771

PATIENT
  Age: 83 Year
  Sex: Male

DRUGS (1)
  1. RITUXAN [Suspect]
     Indication: NON-HODGKIN'S LYMPHOMA
     Dosage: 375 MG/M2, INTRAVENOUS
     Route: 042
     Dates: start: 20050609

REACTIONS (9)
  - DYSPNOEA [None]
  - LUNG DISORDER [None]
  - LUNG INFILTRATION [None]
  - NEUTROPHIL PERCENTAGE INCREASED [None]
  - PCO2 DECREASED [None]
  - PLEURAL EFFUSION [None]
  - PO2 DECREASED [None]
  - PYREXIA [None]
  - WHITE BLOOD CELL COUNT INCREASED [None]
